FAERS Safety Report 7481303-3 (Version None)
Quarter: 2011Q2

REPORT INFORMATION
  Report Type: 
  Country: None (occurrence: None)
  Receive Date: 20110506
  Receipt Date: 20110427
  Transmission Date: 20111010
  Serious: Yes (Death)
  Sender: FDA-Public Use
  Company Number: UTC-006577

PATIENT
  Sex: Female

DRUGS (1)
  1. TYVASO [Suspect]
     Indication: PULMONARY HYPERTENSION
     Dosage: 36-42 MICROGRAMS (4 IN 1  D), INHALATION
     Route: 055
     Dates: start: 20110201

REACTIONS (1)
  - GENERAL PHYSICAL HEALTH DETERIORATION [None]
